FAERS Safety Report 7556234-0 (Version None)
Quarter: 2011Q2

REPORT INFORMATION
  Report Type: 
  Country: None (occurrence: None)
  Receive Date: 20110615
  Receipt Date: 20110615
  Transmission Date: 20111010
  Serious: No
  Sender: FDA-Public Use
  Company Number: None

PATIENT
  Sex: Male
  Weight: 72.1219 kg

DRUGS (2)
  1. PREDNISONE [Concomitant]
  2. ZYTIGA [Suspect]
     Indication: PROSTATE CANCER
     Dosage: 1000MG DAILY PO
     Route: 048
     Dates: start: 20110601, end: 20110613

REACTIONS (1)
  - RASH MACULO-PAPULAR [None]
